FAERS Safety Report 21969986 (Version 1)
Quarter: 2023Q1

REPORT INFORMATION
  Report Type: Spontaneous
  Country: US (occurrence: US)
  Receive Date: 20230208
  Receipt Date: 20230208
  Transmission Date: 20230417
  Serious: No
  Sender: FDA-Public Use
  Company Number: US-STRIDES ARCOLAB LIMITED-2022SP011104

PATIENT
  Age: 8 Decade
  Sex: Male

DRUGS (2)
  1. AMOXICILLIN [Suspect]
     Active Substance: AMOXICILLIN
     Indication: Actinomycosis
     Dosage: UNK
     Route: 048
  2. AMOXICILLIN [Suspect]
     Active Substance: AMOXICILLIN
     Indication: Actinomycotic abdominal infection

REACTIONS (2)
  - Diarrhoea [Unknown]
  - Off label use [Unknown]
